FAERS Safety Report 13553836 (Version 1)
Quarter: 2017Q2

REPORT INFORMATION
  Report Type: Report from Study
  Country: IN (occurrence: IN)
  Receive Date: 20170517
  Receipt Date: 20170517
  Transmission Date: 20170830
  Serious: Yes (Death, Other)
  Sender: FDA-Public Use
  Company Number: IN-INCYTE CORPORATION-2017IN002506

PATIENT
  Age: 56 Year
  Sex: Male

DRUGS (1)
  1. JAKAVI [Suspect]
     Active Substance: RUXOLITINIB
     Indication: PRIMARY MYELOFIBROSIS
     Dosage: 5 MG, BID
     Route: 048
     Dates: start: 20160827, end: 20170122

REACTIONS (2)
  - Death [Fatal]
  - Thrombocytopenia [Unknown]

NARRATIVE: CASE EVENT DATE: 20170122
